FAERS Safety Report 25425176 (Version 1)
Quarter: 2025Q2

REPORT INFORMATION
  Report Type: Spontaneous
  Country: US (occurrence: US)
  Receive Date: 20250611
  Receipt Date: 20250611
  Transmission Date: 20250716
  Serious: Yes (Other)
  Sender: ABBVIE
  Company Number: US-ABBVIE-6317593

PATIENT
  Sex: Female

DRUGS (1)
  1. CREON [Suspect]
     Active Substance: PANCRELIPASE AMYLASE\PANCRELIPASE LIPASE\PANCRELIPASE PROTEASE
     Indication: Pancreatic failure
     Route: 048

REACTIONS (7)
  - Neoplasm malignant [Unknown]
  - Constipation [Unknown]
  - Flatulence [Unknown]
  - Abdominal distension [Unknown]
  - Weight increased [Unknown]
  - Diarrhoea [Recovering/Resolving]
  - Steatorrhoea [Recovering/Resolving]
